FAERS Safety Report 13540802 (Version 6)
Quarter: 2017Q3

REPORT INFORMATION
  Report Type: Report from Study
  Country: DE (occurrence: DE)
  Receive Date: 20170512
  Receipt Date: 20170822
  Transmission Date: 20171127
  Serious: Yes (Death)
  Sender: FDA-Public Use
  Company Number: DE-PFIZER INC-2017206756

PATIENT
  Age: 54 Year
  Sex: Female
  Weight: 70 kg

DRUGS (8)
  1. ETOPOSIDE. [Suspect]
     Active Substance: ETOPOSIDE
     Indication: ACUTE MYELOID LEUKAEMIA
     Dosage: 190 MG, DAILY
     Dates: start: 20170426, end: 20170426
  2. GEMTUZUMAB OZOGAMICIN [Suspect]
     Active Substance: GEMTUZUMAB OZOGAMICIN
     Indication: ACUTE MYELOID LEUKAEMIA
     Dosage: 5.7 MG, DAILY
     Dates: start: 20170426, end: 20170426
  3. ATRA [Suspect]
     Active Substance: TRETINOIN
     Dosage: 30 MG, DAILY
     Dates: start: 20170505, end: 20170508
  4. CYTARABIN [Suspect]
     Active Substance: CYTARABINE
     Indication: ACUTE MYELOID LEUKAEMIA
     Dosage: 190 MG, DAILY
     Dates: start: 20170426, end: 20170501
  5. ETOPOSIDE. [Suspect]
     Active Substance: ETOPOSIDE
     Dosage: 190 MG, DAILY
     Dates: start: 20170429, end: 20170429
  6. IDARUBICIN [Suspect]
     Active Substance: IDARUBICIN
     Dosage: 20 MG, DAILY
     Dates: start: 20170429, end: 20170429
  7. IDARUBICIN [Suspect]
     Active Substance: IDARUBICIN
     Indication: ACUTE MYELOID LEUKAEMIA
     Dosage: 20 MG, DAILY
     Dates: start: 20170426, end: 20170426
  8. ATRA [Suspect]
     Active Substance: TRETINOIN
     Indication: ACUTE MYELOID LEUKAEMIA
     Dosage: 90 MG, DAILY
     Dates: start: 20170502, end: 20170504

REACTIONS (1)
  - Haemorrhage intracranial [Fatal]

NARRATIVE: CASE EVENT DATE: 20170508
